FAERS Safety Report 9239940 (Version 1)
Quarter: 2013Q2

REPORT INFORMATION
  Report Type: Spontaneous
  Country: IL (occurrence: IL)
  Receive Date: 20130418
  Receipt Date: 20130418
  Transmission Date: 20140414
  Serious: Yes (Hospitalization, Other)
  Sender: FDA-Public Use
  Company Number: PHHY2013IL035332

PATIENT
  Age: 21 Year
  Sex: Male

DRUGS (2)
  1. SANDOSTATIN LAR [Suspect]
     Indication: CARCINOID TUMOUR
     Dosage: 30 MG, Q4W
     Dates: start: 20100309
  2. SANDOSTATIN LAR [Suspect]
     Dosage: 30 MG, Q4W
     Dates: start: 20130313

REACTIONS (3)
  - Gastrointestinal haemorrhage [Unknown]
  - Abdominal pain [Unknown]
  - Pyrexia [Not Recovered/Not Resolved]
